FAERS Safety Report 6386067-2 (Version None)
Quarter: 2009Q4

REPORT INFORMATION
  Report Type: 
  Country: None (occurrence: None)
  Receive Date: 20091002
  Receipt Date: 20071205
  Transmission Date: 20100525
  Serious: No
  Sender: FDA-Public Use
  Company Number: US-ASTRAZENECA-2008UW25296

PATIENT
  Age: 68 Year
  Sex: Female
  Weight: 77.1 kg

DRUGS (4)
  1. ARIMIDEX [Suspect]
     Indication: BREAST CANCER FEMALE
     Route: 048
     Dates: start: 20060101
  2. TOPROL-XL [Concomitant]
     Route: 048
  3. CRESTOR [Concomitant]
  4. ACECOL [Concomitant]

REACTIONS (2)
  - SLEEP DISORDER [None]
  - WEIGHT INCREASED [None]
